FAERS Safety Report 16678653 (Version 2)
Quarter: 2019Q3

REPORT INFORMATION
  Report Type: Spontaneous
  Country: US (occurrence: US)
  Receive Date: 20190807
  Receipt Date: 20190919
  Transmission Date: 20191004
  Serious: Yes (Other)
  Sender: FDA-Public Use
  Company Number: US-PFIZER INC-2019334840

PATIENT
  Age: 77 Year
  Sex: Female
  Weight: 72.56 kg

DRUGS (2)
  1. PREMARIN [Suspect]
     Active Substance: ESTROGENS, CONJUGATED
     Dosage: UNK(0.625 ONCE A DAY 5 DAYS 2 OFF)
     Dates: start: 1984, end: 2017
  2. AMLODIPINE [Concomitant]
     Active Substance: AMLODIPINE BESYLATE
     Dosage: UNK

REACTIONS (6)
  - Monoclonal gammopathy [Unknown]
  - Anaemia [Unknown]
  - Plasma cell myeloma [Not Recovered/Not Resolved]
  - Metastases to bone [Unknown]
  - Pelvic fracture [Unknown]
  - Bone disorder [Unknown]

NARRATIVE: CASE EVENT DATE: 2017
